FAERS Safety Report 4758597-8 (Version None)
Quarter: 2005Q3

REPORT INFORMATION
  Report Type: 
  Country: None (occurrence: None)
  Receive Date: 20050901
  Receipt Date: 20050823
  Transmission Date: 20060218
  Serious: Yes (Hospitalization)
  Sender: FDA-Public Use
  Company Number: FR-JNJFOC-20050600366

PATIENT
  Sex: Male
  Weight: 32 kg

DRUGS (9)
  1. PROPULSID [Suspect]
     Route: 048
  2. NOZINAN [Concomitant]
  3. TERCIAN [Concomitant]
     Route: 065
  4. TERCIAN [Concomitant]
     Indication: AGITATION
     Route: 065
  5. TERCIAN [Concomitant]
     Route: 065
  6. AERIUS [Concomitant]
  7. OMEPRAZOLE [Concomitant]
     Route: 065
  8. GAVISCON [Concomitant]
     Route: 065
  9. GAVISCON [Concomitant]
     Route: 065

REACTIONS (3)
  - CONVULSION [None]
  - OTITIS MEDIA [None]
  - PYREXIA [None]
